FAERS Safety Report 5424331-1 (Version None)
Quarter: 2007Q3

REPORT INFORMATION
  Report Type: 
  Country: None (occurrence: None)
  Receive Date: 20070822
  Receipt Date: 20070806
  Transmission Date: 20080115
  Serious: Yes (Life-Threatening)
  Sender: FDA-Public Use
  Company Number: DSJ-2007-04239

PATIENT
  Age: 58 Year
  Sex: Male
  Weight: 45 kg

DRUGS (1)
  1. OLMESARTAN MEDOXOMIL [Suspect]
     Indication: ESSENTIAL HYPERTENSION
     Dosage: 10 MG (10 MG, 1 IN 1 D), PER ORAL
     Route: 048
     Dates: start: 20070112, end: 20070510

REACTIONS (2)
  - INTRA-CEREBRAL ANEURYSM OPERATION [None]
  - PLATELET COUNT DECREASED [None]
